FAERS Safety Report 6252707-1 (Version None)
Quarter: 2009Q3

REPORT INFORMATION
  Report Type: 
  Country: None (occurrence: None)
  Receive Date: 20090701
  Receipt Date: 20090622
  Transmission Date: 20100115
  Serious: Yes (Other)
  Sender: FDA-Public Use
  Company Number: US-ELI_LILLY_AND_COMPANY-US200906000478

PATIENT
  Age: 77 Year
  Sex: Female

DRUGS (3)
  1. ALIMTA [Suspect]
     Indication: NON-SMALL CELL LUNG CANCER
     Dates: start: 20060516, end: 20090107
  2. FOLIC ACID [Concomitant]
     Dosage: 800 MG, DAILY (1/D)
  3. VITAMIN B-12 [Concomitant]
     Dosage: UNK, OTHER

REACTIONS (9)
  - BLOOD CREATININE ABNORMAL [None]
  - COMPUTERISED TOMOGRAM ABNORMAL [None]
  - DECREASED APPETITE [None]
  - FATIGUE [None]
  - LOSS OF CONSCIOUSNESS [None]
  - RASH PRURITIC [None]
  - RENAL IMPAIRMENT [None]
  - SKIN LESION [None]
  - THERAPEUTIC AGENT TOXICITY [None]
